FAERS Safety Report 6051782-7 (Version None)
Quarter: 2009Q1

REPORT INFORMATION
  Report Type: 
  Country: None (occurrence: None)
  Receive Date: 20090126
  Receipt Date: 20090113
  Transmission Date: 20090719
  Serious: Yes (Hospitalization)
  Sender: FDA-Public Use
  Company Number: BR-BRISTOL-MYERS SQUIBB COMPANY-14252449

PATIENT
  Age: 31 Year
  Sex: Female

DRUGS (7)
  1. ABATACEPT [Suspect]
     Indication: COLITIS ULCERATIVE
     Dosage: INTERRUPTED ON 19MAY08.
     Route: 042
     Dates: start: 20080229, end: 20080519
  2. PREDNISONE [Concomitant]
     Dates: start: 20080701
  3. AZATHIOPRINE [Concomitant]
     Dates: start: 20070901
  4. MORICIZINE [Concomitant]
     Dates: start: 20060101
  5. MESALAZINE [Concomitant]
     Dates: start: 20060101
  6. INFLIXIMAB [Concomitant]
     Dates: start: 20080701
  7. SERTRALINE [Concomitant]
     Dates: start: 20080429

REACTIONS (2)
  - COLITIS ULCERATIVE [None]
  - NEPHROLITHIASIS [None]
